FAERS Safety Report 7648091-9 (Version None)
Quarter: 2011Q3

REPORT INFORMATION
  Report Type: 
  Country: None (occurrence: None)
  Receive Date: 20110801
  Receipt Date: 20110713
  Transmission Date: 20111222
  Serious: Yes (Hospitalization)
  Sender: FDA-Public Use
  Company Number: IT-ASTRAZENECA-2011SE41621

PATIENT
  Age: 57 Year
  Sex: Female
  Weight: 80 kg

DRUGS (3)
  1. FULVESTRANT [Suspect]
     Indication: BREAST CANCER METASTATIC
     Dosage: 250 MGS
     Dates: start: 20110401, end: 20110531
  2. LAPATINIB [Suspect]
     Indication: BREAST CANCER METASTATIC
     Dates: start: 20110401, end: 20110531
  3. AROMASIN [Suspect]
     Indication: BREAST CANCER METASTATIC
     Dates: start: 20110401, end: 20110531

REACTIONS (2)
  - EJECTION FRACTION DECREASED [None]
  - ATRIAL FIBRILLATION [None]
